FAERS Safety Report 5578110-5 (Version None)
Quarter: 2007Q4

REPORT INFORMATION
  Report Type: 
  Country: None (occurrence: None)
  Receive Date: 20071227
  Receipt Date: 20071212
  Transmission Date: 20080405
  Serious: Yes (Hospitalization, Other)
  Sender: FDA-Public Use
  Company Number: 2007SP024853

PATIENT
  Age: 14 Year
  Sex: Male

DRUGS (4)
  1. CELESTAMINE TAB [Suspect]
     Indication: ORAL HERPES
     Dosage: PO
     Route: 048
     Dates: start: 20060821
  2. ACYCLOVIR [Concomitant]
  3. VIDARABINE [Concomitant]
  4. CEFCAPENE PIVOXIL HYDROCHLORIDE [Concomitant]

REACTIONS (4)
  - ANOREXIA [None]
  - ELECTROCARDIOGRAM QT PROLONGED [None]
  - STEVENS-JOHNSON SYNDROME [None]
  - STRESS [None]
